FAERS Safety Report 5500390-2 (Version None)
Quarter: 2007Q4

REPORT INFORMATION
  Report Type: 
  Country: None (occurrence: None)
  Receive Date: 20071029
  Receipt Date: 20071018
  Transmission Date: 20080405
  Serious: Yes (Other)
  Sender: FDA-Public Use
  Company Number: US-ROCHE-526169

PATIENT
  Age: 66 Year
  Sex: Female

DRUGS (2)
  1. BONIVA [Suspect]
     Indication: OSTEOPOROSIS
     Route: 048
     Dates: start: 20050101
  2. SYNTHROID [Concomitant]
     Indication: THYROID DISORDER

REACTIONS (1)
  - TOOTH RESORPTION [None]
